FAERS Safety Report 25873875 (Version 1)
Quarter: 2025Q4

REPORT INFORMATION
  Report Type: Spontaneous
  Country: EU (occurrence: EU)
  Receive Date: 20251002
  Receipt Date: 20251002
  Transmission Date: 20260118
  Serious: Yes (Other)
  Sender: RANBAXY
  Company Number: EU-AUROBINDO-AUR-APL-2023-012704

PATIENT
  Age: 73 Year
  Sex: Female

DRUGS (4)
  1. ATORVASTATIN [Suspect]
     Active Substance: ATORVASTATIN
     Indication: Blood cholesterol increased
     Dosage: 40 MILLIGRAM, DAILY
     Route: 065
  2. ATORVASTATIN [Suspect]
     Active Substance: ATORVASTATIN
     Indication: Hypercholesterolaemia
     Dosage: 20 MILLIGRAM, DAILY
     Route: 065
  3. CITALOPRAM [Interacting]
     Active Substance: CITALOPRAM
     Indication: Depression
     Dosage: 20 MILLIGRAM, ONCE A DAY
     Route: 065
  4. CITALOPRAM [Interacting]
     Active Substance: CITALOPRAM
     Dosage: 40 MILLIGRAM
     Route: 065

REACTIONS (4)
  - Myalgia [Recovered/Resolved]
  - Labelled drug-drug interaction medication error [Unknown]
  - Drug interaction [Recovered/Resolved]
  - Pain in extremity [Recovered/Resolved]
